FAERS Safety Report 10185620 (Version 2)
Quarter: 2015Q1

REPORT INFORMATION
  Report Type: Spontaneous
  Country: DE (occurrence: DE)
  Receive Date: 20140521
  Receipt Date: 20140521
  Transmission Date: 20150720
  Serious: Yes (Other)
  Sender: FDA-Public Use
  Company Number: DE-ACTAVIS-2014-10061

PATIENT
  Age: 49 Year
  Sex: Female

DRUGS (2)
  1. MEPIVACAINE [Suspect]
     Active Substance: MEPIVACAINE\MEPIVACAINE HYDROCHLORIDE
     Indication: BACK PAIN
     Dosage: UNKNOWN
     Route: 030
  2. TRIAMCINOLONE ACETONIDE (AMALLC) [Suspect]
     Active Substance: TRIAMCINOLONE ACETONIDE
     Indication: BACK PAIN
     Dosage: UNKNOWN
     Route: 030

REACTIONS (2)
  - Necrotising fasciitis streptococcal [Recovered/Resolved]
  - Peptostreptococcus infection [Recovered/Resolved]
